FAERS Safety Report 17128564 (Version 1)
Quarter: 2019Q4

REPORT INFORMATION
  Report Type: Report from Study
  Country: EG (occurrence: EG)
  Receive Date: 20191209
  Receipt Date: 20191209
  Transmission Date: 20200122
  Serious: Yes (Hospitalization, Other)
  Sender: FDA-Public Use
  Company Number: NVSC2019EG036414

PATIENT
  Age: 71 Year
  Sex: Female

DRUGS (7)
  1. NAPIZOLE [Concomitant]
     Indication: GASTROINTESTINAL DISORDER
     Dosage: UNK, BID
     Route: 065
  2. GLUCOPHAGE [Suspect]
     Active Substance: METFORMIN HYDROCHLORIDE
     Indication: DIABETES MELLITUS
     Dosage: UNK, QD
     Route: 065
     Dates: start: 20191102, end: 20191104
  3. CONCOR 5 PLUS [Concomitant]
     Indication: HYPERTENSION
     Dosage: UNK, QD
     Route: 065
  4. HIZAAR [Concomitant]
     Active Substance: HYDROCHLOROTHIAZIDE\LOSARTAN POTASSIUM
     Indication: HYPERTENSION
     Dosage: UNK, QD
     Route: 065
  5. AROMASIN [Concomitant]
     Active Substance: EXEMESTANE
     Indication: PRODUCT USED FOR UNKNOWN INDICATION
     Dosage: 25 MG, QD
     Route: 065
  6. AFINITOR [Suspect]
     Active Substance: EVEROLIMUS
     Indication: BREAST CANCER METASTATIC
     Dosage: 5 MG, QD
     Route: 048
     Dates: start: 20180304
  7. AFINITOR [Suspect]
     Active Substance: EVEROLIMUS
     Indication: BONE CANCER

REACTIONS (7)
  - Diabetes mellitus [Not Recovered/Not Resolved]
  - Diarrhoea [Recovered/Resolved]
  - Pyrexia [Recovered/Resolved]
  - Depression [Not Recovered/Not Resolved]
  - Delusion [Not Recovered/Not Resolved]
  - Psychiatric symptom [Not Recovered/Not Resolved]
  - Gastrointestinal inflammation [Recovering/Resolving]

NARRATIVE: CASE EVENT DATE: 201907
